FAERS Safety Report 17283815 (Version 2)
Quarter: 2020Q1

REPORT INFORMATION
  Report Type: Spontaneous
  Country: JP (occurrence: JP)
  Receive Date: 20200117
  Receipt Date: 20200204
  Transmission Date: 20200409
  Serious: Yes (Hospitalization, Other)
  Sender: FDA-Public Use
  Company Number: JP-ELI_LILLY_AND_COMPANY-JP202001003361

PATIENT
  Age: 86 Year
  Sex: Female

DRUGS (4)
  1. OLANZAPINE. [Suspect]
     Active Substance: OLANZAPINE
     Indication: BIPOLAR I DISORDER
     Dosage: 10 MG
     Route: 048
  2. OLANZAPINE. [Suspect]
     Active Substance: OLANZAPINE
     Dosage: 15 MG
     Route: 048
  3. OLANZAPINE. [Suspect]
     Active Substance: OLANZAPINE
     Dosage: 20 MG
     Route: 048
  4. NITRAZEPAM [Suspect]
     Active Substance: NITRAZEPAM
     Indication: BIPOLAR I DISORDER
     Dosage: 5 MG
     Route: 048

REACTIONS (6)
  - Sarcopenia [Unknown]
  - Weight decreased [Recovering/Resolving]
  - Pneumonia aspiration [Unknown]
  - Hypophagia [Unknown]
  - Parkinsonism [Unknown]
  - Dysphagia [Recovering/Resolving]
